FAERS Safety Report 8058411-1 (Version None)
Quarter: 2012Q1

REPORT INFORMATION
  Report Type: 
  Country: None (occurrence: None)
  Receive Date: 20120120
  Receipt Date: 20110818
  Transmission Date: 20120608
  Serious: Yes (Other)
  Sender: FDA-Public Use
  Company Number: US-UCBSA-039270

PATIENT
  Age: 30 Year
  Sex: Female

DRUGS (8)
  1. ACETAMINOPHEN [Concomitant]
     Indication: HEADACHE
     Dosage: 1 CAPSULE AS NEEDED
     Route: 048
  2. PEPCID AL [Concomitant]
     Indication: DYSPEPSIA
     Route: 048
  3. KEPPRA XR [Suspect]
     Indication: EPILEPSY
  4. FOLIC ACID [Concomitant]
     Indication: PREGNANCY
     Route: 048
     Dates: start: 20101109
  5. FERROUS SULFATE TAB [Concomitant]
     Indication: ANAEMIA
  6. KEPPRA XR [Suspect]
     Indication: CONVULSION
  7. TRAZODONE HCL [Concomitant]
     Indication: ANTICIPATORY ANXIETY
     Route: 048
     Dates: end: 20101105
  8. PRENATAL COMPLETE [Concomitant]
     Indication: HYPOVITAMINOSIS
     Route: 048

REACTIONS (5)
  - DYSPEPSIA [None]
  - TWIN PREGNANCY [None]
  - PREGNANCY [None]
  - ANAEMIA [None]
  - PREMATURE DELIVERY [None]
